FAERS Safety Report 15793108 (Version 1)
Quarter: 2019Q1

REPORT INFORMATION
  Report Type: Report from Study
  Country: US (occurrence: US)
  Receive Date: 20190107
  Receipt Date: 20190107
  Transmission Date: 20190417
  Serious: Yes (Hospitalization)
  Sender: FDA-Public Use
  Company Number: US-TEVA-2019-US-995154

PATIENT
  Age: 50 Year
  Sex: Female

DRUGS (1)
  1. CINQAIR [Suspect]
     Active Substance: RESLIZUMAB
     Route: 042
     Dates: start: 20180205, end: 20181015

REACTIONS (2)
  - Feeling abnormal [Recovered/Resolved]
  - Infusion site hypoaesthesia [Recovered/Resolved]

NARRATIVE: CASE EVENT DATE: 201810
